FAERS Safety Report 8489474-7 (Version None)
Quarter: 2012Q3

REPORT INFORMATION
  Report Type: 
  Country: None (occurrence: None)
  Receive Date: 20120705
  Receipt Date: 20120627
  Transmission Date: 20120928
  Serious: No
  Sender: FDA-Public Use
  Company Number: US-PFIZER INC-2012155277

PATIENT
  Sex: Female
  Weight: 65.306 kg

DRUGS (12)
  1. ACETYLSALICYLIC ACID SRT [Suspect]
     Dosage: UNK
  2. OXYCODONE [Concomitant]
     Indication: BACK PAIN
     Dosage: 5 MG, 3X/DAY
  3. OXYCODONE [Concomitant]
     Indication: PAIN IN EXTREMITY
  4. LYRICA [Suspect]
     Dosage: 50 MG, 3X/DAY
     Route: 048
     Dates: start: 20120101, end: 20120101
  5. ALBUTEROL SULFATE [Concomitant]
     Indication: ASTHMA
     Dosage: UNK
  6. GABAPENTIN [Suspect]
     Indication: HYPOAESTHESIA
     Dosage: 50 MG, 2X/DAY
  7. GABAPENTIN [Suspect]
     Dosage: UNK
     Dates: start: 20120101, end: 20120101
  8. DEXTROAMPHETAMINE [Suspect]
     Indication: ATTENTION DEFICIT/HYPERACTIVITY DISORDER
     Dosage: 10 MG, 2X/DAY
  9. LYRICA [Suspect]
     Indication: PAIN IN EXTREMITY
     Dosage: TWO 50MG CAPSULES IN MORNING AND ONE 50MG CAPSULE IN EVENING
     Route: 048
     Dates: start: 20120101, end: 20120101
  10. IBUPROFEN [Suspect]
     Dosage: UNK
  11. LYRICA [Suspect]
     Indication: HYPOAESTHESIA
     Dosage: 50 MG, 3X/DAY
     Route: 048
     Dates: start: 20120425, end: 20120101
  12. LYRICA [Suspect]
     Dosage: 50 MG, 2X/DAY
     Route: 048
     Dates: start: 20120626

REACTIONS (14)
  - HYPOAESTHESIA [None]
  - DISTURBANCE IN ATTENTION [None]
  - PAIN [None]
  - RESPIRATORY DISORDER [None]
  - FLUSHING [None]
  - INSOMNIA [None]
  - LETHARGY [None]
  - ABDOMINAL DISTENSION [None]
  - EMOTIONAL DISORDER [None]
  - FEELING ABNORMAL [None]
  - DRUG INEFFECTIVE [None]
  - VISION BLURRED [None]
  - DRUG INTOLERANCE [None]
  - GASTRIC DISORDER [None]
